FAERS Safety Report 23761379 (Version 1)
Quarter: 2024Q2

REPORT INFORMATION
  Report Type: Spontaneous
  Country: EG (occurrence: EG)
  Receive Date: 20240419
  Receipt Date: 20240419
  Transmission Date: 20240715
  Serious: Yes (Other)
  Sender: FDA-Public Use
  Company Number: EG-AMNEAL PHARMACEUTICALS-2024-AMRX-01289

PATIENT
  Age: 33 Year
  Sex: Male

DRUGS (2)
  1. PREDNISOLONE SODIUM PHOSPHATE [Suspect]
     Active Substance: PREDNISOLONE SODIUM PHOSPHATE
     Indication: Glomerulonephritis membranous
     Dosage: 40 MG/DAY
     Route: 065
  2. VALSARTAN [Concomitant]
     Active Substance: VALSARTAN
     Indication: Glomerulonephritis membranous
     Dosage: 80 MG
     Route: 065

REACTIONS (1)
  - Retinopathy [Unknown]
